FAERS Safety Report 4790592-5 (Version None)
Quarter: 2005Q4

REPORT INFORMATION
  Report Type: 
  Country: None (occurrence: None)
  Receive Date: 20051006
  Receipt Date: 20050929
  Transmission Date: 20060501
  Serious: Yes (Hospitalization)
  Sender: FDA-Public Use
  Company Number: US-MERCK-0510USA00649

PATIENT
  Age: 56 Year
  Sex: Male
  Weight: 77 kg

DRUGS (2)
  1. VIOXX [Suspect]
     Indication: ARTHRITIS
     Route: 048
  2. ASPIRIN [Concomitant]
     Route: 065

REACTIONS (6)
  - ANGINA PECTORIS [None]
  - ARTERIAL OCCLUSIVE DISEASE [None]
  - DEPRESSION [None]
  - HEART RATE DECREASED [None]
  - MYOCARDIAL INFARCTION [None]
  - NERVOUSNESS [None]
